FAERS Safety Report 17733643 (Version 1)
Quarter: 2020Q2

REPORT INFORMATION
  Report Type: Spontaneous
  Country: US (occurrence: US)
  Receive Date: 20200430
  Receipt Date: 20200430
  Transmission Date: 20200714
  Serious: Yes (Hospitalization)
  Sender: FDA-Public Use
  Company Number: None

PATIENT
  Age: 77 Year
  Sex: Male
  Weight: 128 kg

DRUGS (1)
  1. PREGABALIN (PREGABALIN 150MG CAP, ORAL) [Suspect]
     Active Substance: PREGABALIN
     Route: 048
     Dates: start: 20190510, end: 20200215

REACTIONS (4)
  - Presyncope [None]
  - Fall [None]
  - Post-anoxic myoclonus [None]
  - Mental status changes [None]

NARRATIVE: CASE EVENT DATE: 20200215
